FAERS Safety Report 5875695-6 (Version None)
Quarter: 2008Q3

REPORT INFORMATION
  Report Type: 
  Country: None (occurrence: None)
  Receive Date: 20080904
  Receipt Date: 20080811
  Transmission Date: 20090109
  Serious: No
  Sender: FDA-Public Use
  Company Number: 08H-163-0314826-00

PATIENT
  Age: 18 Month
  Sex: Male

DRUGS (1)
  1. DOPAMINE HCL AND DEXTROSE 5% [Suspect]
     Dosage: INTRAVENOUS DRIP
     Route: 041
     Dates: start: 20080701, end: 20080701

REACTIONS (3)
  - BLOOD PRESSURE ABNORMAL [None]
  - DEVICE OCCLUSION [None]
  - MEDICAL DEVICE COMPLICATION [None]
